FAERS Safety Report 15553880 (Version 2)
Quarter: 2020Q2

REPORT INFORMATION
  Report Type: Report from Study
  Country: US (occurrence: US)
  Receive Date: 20181026
  Receipt Date: 20200428
  Transmission Date: 20200713
  Serious: Yes (Other)
  Sender: FDA-Public Use
  Company Number: US-ROCHE-2205182

PATIENT
  Age: 31 Year
  Sex: Female
  Weight: 59.02 kg

DRUGS (5)
  1. FLORAJEN [Concomitant]
     Active Substance: PROBIOTICS NOS
     Route: 048
     Dates: start: 2018
  2. OCREVUS [Suspect]
     Active Substance: OCRELIZUMAB
     Route: 042
  3. OCREVUS [Suspect]
     Active Substance: OCRELIZUMAB
     Indication: RELAPSING MULTIPLE SCLEROSIS
     Dosage: LAST OCRELIZUMAB INFUSION WAS ON 19/OCT/2018?LAST INFUSION DATE-19/APR/2019?DATE OF TREATMENT- 20/AP
     Route: 042
     Dates: start: 201709
  4. BIOTIN [Concomitant]
     Active Substance: BIOTIN
     Indication: MULTIPLE SCLEROSIS
     Route: 048
     Dates: start: 2017
  5. VITAMIN D3 [Concomitant]
     Active Substance: CHOLECALCIFEROL
     Indication: MULTIPLE SCLEROSIS
     Route: 048

REACTIONS (5)
  - Urinary tract infection [Unknown]
  - Fatigue [Unknown]
  - Dysuria [Unknown]
  - Back pain [Unknown]
  - Dizziness [Unknown]

NARRATIVE: CASE EVENT DATE: 201810
